FAERS Safety Report 14601844 (Version 2)
Quarter: 2018Q2

REPORT INFORMATION
  Report Type: Report from Study
  Country: None (occurrence: US)
  Receive Date: 20180306
  Receipt Date: 20180424
  Transmission Date: 20180711
  Serious: Yes (Other)
  Sender: FDA-Public Use
  Company Number: US-ABBVIE-17K-163-2047460-00

PATIENT
  Age: 82 Year
  Sex: Female

DRUGS (2)
  1. HUMIRA [Suspect]
     Active Substance: ADALIMUMAB
     Route: 058
     Dates: start: 20170719
  2. HUMIRA [Suspect]
     Active Substance: ADALIMUMAB
     Indication: PSORIASIS
     Dosage: DAY 1
     Route: 058
     Dates: start: 20170712, end: 20170712

REACTIONS (24)
  - Fatigue [Recovering/Resolving]
  - Pruritus [Not Recovered/Not Resolved]
  - Pruritus [Not Recovered/Not Resolved]
  - Iron deficiency anaemia [Unknown]
  - Erythema [Unknown]
  - Injection site pain [Unknown]
  - Headache [Unknown]
  - Procedural haemorrhage [Unknown]
  - Respiratory tract congestion [Recovering/Resolving]
  - Oral neoplasm benign [Not Recovered/Not Resolved]
  - Impatience [Unknown]
  - Musculoskeletal stiffness [Unknown]
  - Skin lesion [Recovering/Resolving]
  - Cough [Recovering/Resolving]
  - Post procedural infection [Recovered/Resolved]
  - Rash [Recovered/Resolved]
  - Headache [Not Recovered/Not Resolved]
  - Sinus congestion [Recovering/Resolving]
  - Dyspnoea exertional [Unknown]
  - Tooth extraction [Unknown]
  - Sinus disorder [Unknown]
  - Increased tendency to bruise [Unknown]
  - Visual impairment [Unknown]
  - Injection site bruising [Unknown]

NARRATIVE: CASE EVENT DATE: 2017
